FAERS Safety Report 8300850-5 (Version None)
Quarter: 2012Q2

REPORT INFORMATION
  Report Type: 
  Country: None (occurrence: None)
  Receive Date: 20120420
  Receipt Date: 20120410
  Transmission Date: 20120825
  Serious: Yes (Other)
  Sender: FDA-Public Use
  Company Number: US-GENZYME-FABR-1002454

PATIENT
  Sex: Male
  Weight: 100.2 kg

DRUGS (11)
  1. FABRAZYME [Suspect]
     Indication: FABRY'S DISEASE
     Dosage: 1.05 MG/KG, Q2W
     Route: 042
     Dates: start: 20020101
  2. SOLU-CORTEF [Concomitant]
     Dosage: 50 MG, Q2W
     Route: 065
  3. NEURONTIN [Concomitant]
     Indication: PRODUCT USED FOR UNKNOWN INDICATION
     Dosage: 600 MG, TID
     Route: 065
  4. PROTONIX [Concomitant]
     Indication: PRODUCT USED FOR UNKNOWN INDICATION
     Dosage: 40 MG, QD
     Route: 065
  5. SOLU-CORTEF [Concomitant]
     Indication: PREMEDICATION
     Dosage: 100 MG, Q2W
     Route: 065
  6. PREDNISONE TAB [Concomitant]
     Indication: INFUSION RELATED REACTION
     Dosage: 10 MG, PRN
     Route: 065
  7. BENADRYL [Concomitant]
     Indication: PREMEDICATION
     Dosage: UNK
     Route: 065
  8. ULTRAM [Concomitant]
     Indication: PRODUCT USED FOR UNKNOWN INDICATION
     Route: 065
  9. KLONOPIN [Concomitant]
     Indication: PRODUCT USED FOR UNKNOWN INDICATION
     Dosage: 0.5 MG, PRN
     Route: 065
  10. PREDNISONE TAB [Concomitant]
     Dosage: 20 MG, PRN
     Route: 065
  11. EPIPEN [Concomitant]
     Indication: PREMEDICATION
     Dosage: UNK
     Route: 065

REACTIONS (1)
  - OSTEONECROSIS [None]
